FAERS Safety Report 20539007 (Version 2)
Quarter: 2022Q3

REPORT INFORMATION
  Report Type: Spontaneous
  Country: JP (occurrence: JP)
  Receive Date: 20220302
  Receipt Date: 20220909
  Transmission Date: 20221026
  Serious: Yes (Other)
  Sender: FDA-Public Use
  Company Number: JP-JNJFOC-20210911063

PATIENT
  Age: 37 Year
  Sex: Male

DRUGS (3)
  1. DARUNAVIR [Suspect]
     Active Substance: DARUNAVIR
     Indication: HIV infection
     Route: 048
     Dates: start: 20170513
  2. DESCOVY [Concomitant]
     Active Substance: EMTRICITABINE\TENOFOVIR ALAFENAMIDE FUMARATE
     Indication: HIV infection
     Route: 048
     Dates: start: 20170513
  3. NORVIR [Concomitant]
     Active Substance: RITONAVIR
     Indication: HIV infection
     Route: 048
     Dates: start: 20170513

REACTIONS (3)
  - Blood creatine phosphokinase increased [Recovering/Resolving]
  - Blood creatine phosphokinase increased [Recovered/Resolved]
  - Hepatic function abnormal [Recovered/Resolved]

NARRATIVE: CASE EVENT DATE: 20170729
